FAERS Safety Report 20479833 (Version 1)
Quarter: 2022Q1

REPORT INFORMATION
  Report Type: Spontaneous
  Country: US (occurrence: None)
  Receive Date: 20220215
  Receipt Date: 20220215
  Transmission Date: 20220423
  Serious: Yes (Other)
  Sender: FDA-Public Use
  Company Number: None

PATIENT
  Age: 85 Year
  Sex: Female
  Weight: 60.75 kg

DRUGS (1)
  1. PROLIA [Suspect]
     Active Substance: DENOSUMAB
     Indication: Osteoporosis
     Dosage: OTHER QUANTITY : 1 INJECTION(S);?OTHER FREQUENCY : EVERY 6 MONTHS;?
     Route: 030

REACTIONS (10)
  - Jaw disorder [None]
  - Osteomyelitis [None]
  - Back pain [None]
  - Tooth disorder [None]
  - Impaired healing [None]
  - Post procedural complication [None]
  - Pain in extremity [None]
  - Exposed bone in jaw [None]
  - Tooth extraction [None]
  - Post procedural infection [None]

NARRATIVE: CASE EVENT DATE: 20210315
